FAERS Safety Report 23470471 (Version 2)
Quarter: 2024Q1

REPORT INFORMATION
  Report Type: Spontaneous
  Country: US (occurrence: US)
  Receive Date: 20240202
  Receipt Date: 20240205
  Transmission Date: 20240409
  Serious: Yes (Death)
  Sender: FDA-Public Use
  Company Number: US-PFIZER INC-202400031275

PATIENT
  Age: 91 Year
  Sex: Male

DRUGS (5)
  1. VYNDAQEL [Suspect]
     Active Substance: TAFAMIDIS MEGLUMINE
     Indication: Amyloidosis
     Dosage: TOOK 4 CAPSULES, EACH CAPSULE IS 20MG, SO TOOK 80MG EVERY NIGHT AROUND 6:30
     Dates: end: 20240119
  2. MIDODRINE [Concomitant]
     Active Substance: MIDODRINE
     Indication: Hypotension
     Dosage: 5MG TABLET, TOOK 3 TABLETS 3 TIMES A DAY AT BREAKFAST, LUNCH, AND DINNER, TOOK 3 EACH TIME SO 15MG
     Dates: start: 2022
  3. TORSEMIDE [Concomitant]
     Active Substance: TORSEMIDE
     Indication: Fluid retention
     Dosage: 2 TABLETS, 20MG A PIECE, IF LEGS REALLY GOT SWOLLEN WAS GIVEN AN EXTRA IN EVENING, BY MOUTH
     Route: 048
  4. TORSEMIDE [Concomitant]
     Active Substance: TORSEMIDE
     Indication: Peripheral swelling
  5. TORSEMIDE [Concomitant]
     Active Substance: TORSEMIDE
     Indication: Joint swelling

REACTIONS (5)
  - Cardiac failure congestive [Fatal]
  - Arteriosclerosis [Fatal]
  - Dysphagia [Unknown]
  - Weight decreased [Unknown]
  - Hypotonia [Unknown]
